FAERS Safety Report 6345329-5 (Version None)
Quarter: 2009Q3

REPORT INFORMATION
  Report Type: 
  Country: None (occurrence: None)
  Receive Date: 20090909
  Receipt Date: 20090904
  Transmission Date: 20100115
  Serious: Yes (Hospitalization, Other)
  Sender: FDA-Public Use
  Company Number: JP-ABBOTT-09P-087-0588297-00

PATIENT
  Sex: Male

DRUGS (2)
  1. KLARICID TABLETS [Suspect]
     Indication: NASOPHARYNGITIS
     Route: 048
     Dates: start: 20080909
  2. MAOTO [Concomitant]
     Indication: NASOPHARYNGITIS
     Route: 048
     Dates: start: 20080909

REACTIONS (1)
  - HEPATITIS [None]
